FAERS Safety Report 20102827 (Version 3)
Quarter: 2021Q4

REPORT INFORMATION
  Report Type: Report from Study
  Country: US (occurrence: US)
  Receive Date: 20211123
  Receipt Date: 20211221
  Transmission Date: 20220303
  Serious: Yes (Other)
  Sender: FDA-Public Use
  Company Number: US-NOVARTISPH-NVSC2021US264651

PATIENT
  Sex: Male

DRUGS (1)
  1. TEGRETOL XR [Suspect]
     Active Substance: CARBAMAZEPINE
     Indication: Multiple sclerosis relapse
     Dosage: UNK
     Route: 065

REACTIONS (8)
  - Multiple sclerosis [Unknown]
  - Gait disturbance [Unknown]
  - Seizure [Unknown]
  - Multiple sclerosis relapse [Unknown]
  - Amnesia [Unknown]
  - Urinary tract infection [Unknown]
  - Infection [Unknown]
  - Illness [Unknown]
